FAERS Safety Report 9657758 (Version 1)
Quarter: 2013Q4

REPORT INFORMATION
  Report Type: Spontaneous
  Country: US (occurrence: US)
  Receive Date: 20131030
  Receipt Date: 20131030
  Transmission Date: 20140711
  Serious: No
  Sender: FDA-Public Use
  Company Number: US-PFIZER INC-2013305112

PATIENT
  Sex: Female

DRUGS (2)
  1. CLINDAMYCIN PHOSPHATE [Suspect]
     Dosage: UNK
     Route: 067
  2. WELLBUTRIN XL [Suspect]
     Dosage: UNK

REACTIONS (3)
  - Nausea [Unknown]
  - Dizziness [Unknown]
  - Headache [Unknown]
